FAERS Safety Report 18066085 (Version 1)
Quarter: 2020Q3

REPORT INFORMATION
  Report Type: Spontaneous
  Country: MY (occurrence: MY)
  Receive Date: 20200724
  Receipt Date: 20200724
  Transmission Date: 20201103
  Serious: Yes (Other)
  Sender: FDA-Public Use
  Company Number: MY-JNJFOC-20200718518

PATIENT
  Sex: Male

DRUGS (3)
  1. STELARA [Suspect]
     Active Substance: USTEKINUMAB
     Indication: CROHN^S DISEASE
     Dosage: 4 VIALS
     Route: 042
     Dates: start: 20200320
  2. STELARA [Suspect]
     Active Substance: USTEKINUMAB
     Indication: CROHN^S DISEASE
     Route: 058
     Dates: start: 20200318
  3. STELARA [Suspect]
     Active Substance: USTEKINUMAB

REACTIONS (4)
  - Product use in unapproved indication [Unknown]
  - Intestinal stenosis [Unknown]
  - Off label use [Unknown]
  - Crohn^s disease [Unknown]
